FAERS Safety Report 6472042-6 (Version None)
Quarter: 2009Q4

REPORT INFORMATION
  Report Type: 
  Country: None (occurrence: None)
  Receive Date: 20091203
  Receipt Date: 20080516
  Transmission Date: 20100525
  Serious: Yes (Death)
  Sender: FDA-Public Use
  Company Number: FR-ELI_LILLY_AND_COMPANY-FR200804004142

PATIENT
  Age: 25 Year
  Sex: Female

DRUGS (5)
  1. ZYPREXA [Suspect]
     Indication: ABNORMAL BEHAVIOUR
     Dosage: 10 MG, 2/D
     Route: 048
     Dates: start: 20080402
  2. DEPAKOTE [Concomitant]
     Indication: ABNORMAL BEHAVIOUR
     Dosage: 1000 MG, DAILY (1/D)
     Route: 048
     Dates: start: 20070402
  3. RIVOTRIL [Concomitant]
     Indication: ABNORMAL BEHAVIOUR
     Dosage: 6 MG, DAILY (1/D)
     Route: 048
     Dates: start: 20080402
  4. TERCIAN [Concomitant]
     Indication: ABNORMAL BEHAVIOUR
     Dosage: 200 D/F, DAILY (1/D)
     Route: 048
     Dates: start: 20080402
  5. THERALENE [Concomitant]
     Indication: ABNORMAL BEHAVIOUR
     Dosage: 50 D/F, DAILY (1/D)
     Route: 048
     Dates: start: 20080402

REACTIONS (4)
  - DEATH [None]
  - DRY MOUTH [None]
  - SEDATION [None]
  - TREMOR [None]
